FAERS Safety Report 11455822 (Version 4)
Quarter: 2016Q2

REPORT INFORMATION
  Report Type: Spontaneous
  Country: US (occurrence: US)
  Receive Date: 20150903
  Receipt Date: 20160421
  Transmission Date: 20160815
  Serious: Yes (Other)
  Sender: FDA-Public Use
  Company Number: US-PFIZER INC-2015293061

PATIENT
  Age: 62 Year
  Sex: Female

DRUGS (2)
  1. ATORVASTATIN CALCIUM. [Suspect]
     Active Substance: ATORVASTATIN CALCIUM
     Indication: BLOOD CHOLESTEROL INCREASED
     Dosage: 20 MG, UNK
     Route: 048
     Dates: start: 20140409
  2. ATORVASTATIN CALCIUM. [Suspect]
     Active Substance: ATORVASTATIN CALCIUM
     Dosage: UNK
     Route: 048
     Dates: start: 201405

REACTIONS (16)
  - Polymyositis [Unknown]
  - Weight decreased [Unknown]
  - Dysphagia [Unknown]
  - Fatigue [Unknown]
  - Diplopia [Unknown]
  - Pneumonia [Unknown]
  - Heart rate irregular [Unknown]
  - Arthritis [Unknown]
  - Sleep apnoea syndrome [Unknown]
  - Pulmonary fibrosis [Unknown]
  - Blood creatine phosphokinase abnormal [Unknown]
  - Burning sensation [Unknown]
  - Dysstasia [Unknown]
  - Dyspnoea [Unknown]
  - Dysphonia [Unknown]
  - Bone pain [Unknown]

NARRATIVE: CASE EVENT DATE: 2014
